FAERS Safety Report 18407885 (Version 3)
Quarter: 2020Q4

REPORT INFORMATION
  Report Type: Spontaneous
  Country: US (occurrence: US)
  Receive Date: 20201020
  Receipt Date: 20201228
  Transmission Date: 20210114
  Serious: Yes (Congenital Anomaly, Other)
  Sender: FDA-Public Use
  Company Number: NVSC2020US280823

PATIENT
  Sex: Female

DRUGS (1)
  1. ZOFRAN [Suspect]
     Active Substance: ONDANSETRON HYDROCHLORIDE
     Indication: FOETAL EXPOSURE DURING PREGNANCY
     Dosage: MOTHER DOSE: 08 MG, BID
     Route: 064

REACTIONS (14)
  - Arrhythmia [Unknown]
  - Foetal exposure during pregnancy [Unknown]
  - Injury [Unknown]
  - Pyrexia [Unknown]
  - Viral infection [Unknown]
  - Congenital tricuspid valve atresia [Unknown]
  - Heart disease congenital [Unknown]
  - Sinus node dysfunction [Unknown]
  - Cough [Unknown]
  - Pharyngitis streptococcal [Unknown]
  - Ventricular septal defect [Unknown]
  - Atrial septal defect [Unknown]
  - Rhinorrhoea [Unknown]
  - Otitis media [Unknown]
